FAERS Safety Report 9841828 (Version 1)
Quarter: 2014Q1

REPORT INFORMATION
  Report Type: Spontaneous
  Country: US (occurrence: US)
  Receive Date: 20140124
  Receipt Date: 20140124
  Transmission Date: 20141002
  Serious: Yes (Other)
  Sender: FDA-Public Use
  Company Number: US-009507513-1401USA007932

PATIENT
  Age: 60 Year
  Sex: Female

DRUGS (15)
  1. DULERA [Suspect]
     Indication: ASTHMA
     Dosage: 2 PUFFS TWICE A DAY,ABOUT 2 YEARS AGO
     Route: 055
     Dates: start: 201201
  2. VALIUM [Concomitant]
  3. METHOCARBAMOL [Concomitant]
  4. OMEPRAZOLE [Concomitant]
  5. PRAVASTATIN SODIUM [Concomitant]
  6. CLARITINE [Concomitant]
  7. FLUTICASONE [Concomitant]
  8. BUSPAR [Concomitant]
  9. PROZAC [Concomitant]
  10. ABILIFY [Concomitant]
  11. IPRATROPIUM BROMIDE [Concomitant]
  12. CLARITHROMYCIN [Concomitant]
  13. OMNARIS [Concomitant]
  14. CROMOLYN SODIUM - USP (WARRICK) [Concomitant]
  15. MELATONIN [Concomitant]

REACTIONS (6)
  - Hearing impaired [Not Recovered/Not Resolved]
  - Sinus disorder [Not Recovered/Not Resolved]
  - Ear discomfort [Not Recovered/Not Resolved]
  - Nerve injury [Not Recovered/Not Resolved]
  - Headache [Not Recovered/Not Resolved]
  - Vertigo [Unknown]
